FAERS Safety Report 10394530 (Version 5)
Quarter: 2014Q3

REPORT INFORMATION
  Report Type: Report from Study
  Country: AU (occurrence: AU)
  Receive Date: 20140819
  Receipt Date: 20140909
  Transmission Date: 20150326
  Serious: Yes (Other)
  Sender: FDA-Public Use
  Company Number: AU-ROCHE-1424117

PATIENT
  Age: 47 Year
  Sex: Female

DRUGS (6)
  1. SERTRALINE [Concomitant]
     Active Substance: SERTRALINE HYDROCHLORIDE
     Indication: DEPRESSION
     Route: 048
  2. METHOTREXATE [Concomitant]
     Active Substance: METHOTREXATE
     Dosage: HELD JUN/2014 DUE TO INCREASED LFT WITH NO IMPROVEMENT (IN FACT WORSENED)
     Route: 048
  3. PLAQUENIL [Concomitant]
     Active Substance: HYDROXYCHLOROQUINE SULFATE
     Dosage: 15-AUG-2014 SUSPENDED
     Route: 048
     Dates: start: 20140815, end: 20140815
  4. MERSYNDOL FORTE [Concomitant]
     Indication: ANALGESIC THERAPY
     Route: 065
     Dates: start: 20140815
  5. ACTEMRA [Suspect]
     Active Substance: TOCILIZUMAB
     Indication: RHEUMATOID ARTHRITIS
     Dosage: CEASED
     Route: 042
     Dates: start: 20140401, end: 20140827
  6. THYROXINE [Concomitant]
     Active Substance: LEVOTHYROXINE
     Route: 048

REACTIONS (2)
  - Vaginal haemorrhage [Unknown]
  - Liver function test abnormal [Recovering/Resolving]

NARRATIVE: CASE EVENT DATE: 201405
